FAERS Safety Report 13289712 (Version 2)
Quarter: 2017Q1

REPORT INFORMATION
  Report Type: Spontaneous
  Country: RU (occurrence: RU)
  Receive Date: 20170302
  Receipt Date: 20170316
  Transmission Date: 20170428
  Serious: Yes (Hospitalization)
  Sender: FDA-Public Use
  Company Number: RU-ELI_LILLY_AND_COMPANY-RU201703000257

PATIENT
  Age: 49 Year
  Sex: Male

DRUGS (12)
  1. CISPLATIN. [Concomitant]
     Active Substance: CISPLATIN
     Dosage: 50 MG, UNKNOWN
     Route: 065
     Dates: start: 20150729
  2. CARBOPLATIN. [Concomitant]
     Active Substance: CARBOPLATIN
     Dosage: UNK UNK, UNKNOWN
     Route: 065
     Dates: start: 201603
  3. PACLITAXEL. [Concomitant]
     Active Substance: PACLITAXEL
     Dosage: UNK UNK, UNKNOWN
     Route: 065
     Dates: start: 201603
  4. CISPLATIN. [Concomitant]
     Active Substance: CISPLATIN
     Dosage: 50 MG, UNKNOWN
     Route: 065
     Dates: start: 20150813
  5. ERBITUX [Suspect]
     Active Substance: CETUXIMAB
     Indication: NASOPHARYNGEAL CANCER STAGE IV
     Dosage: UNK UNK, UNKNOWN
     Route: 065
  6. CARBOPLATIN. [Concomitant]
     Active Substance: CARBOPLATIN
     Dosage: UNK UNK, UNKNOWN
     Route: 065
     Dates: start: 201602
  7. CAPECITABINE. [Concomitant]
     Active Substance: CAPECITABINE
     Indication: NASOPHARYNGEAL CANCER STAGE IV
     Dosage: UNK UNK, UNKNOWN
     Route: 065
  8. CISPLATIN. [Concomitant]
     Active Substance: CISPLATIN
     Indication: NASOPHARYNGEAL CANCER STAGE IV
     Dosage: 50 MG, UNKNOWN
     Route: 065
     Dates: start: 20150709
  9. CISPLATIN. [Concomitant]
     Active Substance: CISPLATIN
     Dosage: 50 MG, UNKNOWN
     Route: 065
     Dates: start: 20150723
  10. CARBOPLATIN. [Concomitant]
     Active Substance: CARBOPLATIN
     Indication: NASOPHARYNGEAL CANCER STAGE IV
     Dosage: UNK UNK, UNKNOWN
     Route: 065
     Dates: start: 201512
  11. PACLITAXEL. [Concomitant]
     Active Substance: PACLITAXEL
     Indication: NASOPHARYNGEAL CANCER STAGE IV
     Dosage: UNK UNK, UNKNOWN
     Route: 065
     Dates: start: 201512
  12. PACLITAXEL. [Concomitant]
     Active Substance: PACLITAXEL
     Dosage: UNK UNK, UNKNOWN
     Route: 065
     Dates: start: 201602

REACTIONS (3)
  - Off label use [Unknown]
  - Bundle branch block [Unknown]
  - Malignant neoplasm progression [Unknown]

NARRATIVE: CASE EVENT DATE: 20170112
